FAERS Safety Report 7138715-7 (Version None)
Quarter: 2010Q4

REPORT INFORMATION
  Report Type: 
  Country: None (occurrence: None)
  Receive Date: 20101201
  Receipt Date: 20101201
  Transmission Date: 20110411
  Serious: No
  Sender: FDA-Public Use
  Company Number: None

PATIENT
  Age: 62 Year
  Sex: Female

DRUGS (5)
  1. REVLIMID [Suspect]
     Indication: MULTIPLE MYELOMA
     Dosage: 10MG DAILY ORALLY
     Route: 048
  2. ATIVAN [Concomitant]
  3. ZOVIRAX [Concomitant]
  4. DAPSONE [Concomitant]
  5. CODEINE [Concomitant]

REACTIONS (1)
  - LEUKOPENIA [None]
